FAERS Safety Report 6693518-2 (Version None)
Quarter: 2010Q2

REPORT INFORMATION
  Report Type: 
  Country: None (occurrence: None)
  Receive Date: 20100423
  Receipt Date: 20100415
  Transmission Date: 20101027
  Serious: No
  Sender: FDA-Public Use
  Company Number: US-BIOGENIDEC-2010BI013144

PATIENT
  Age: 59 Year
  Sex: Female

DRUGS (2)
  1. TYSABRI [Suspect]
     Indication: MULTIPLE SCLEROSIS
     Route: 042
     Dates: start: 20080124, end: 20081001
  2. TYSABRI [Suspect]
     Route: 042
     Dates: start: 20090626

REACTIONS (4)
  - ALOPECIA [None]
  - FATIGUE [None]
  - MUSCLE SPASMS [None]
  - URINARY TRACT INFECTION [None]
